FAERS Safety Report 10417027 (Version 1)
Quarter: 2014Q3

REPORT INFORMATION
  Report Type: Spontaneous
  Country: JP (occurrence: JP)
  Receive Date: 20140828
  Receipt Date: 20140828
  Transmission Date: 20150326
  Serious: No
  Sender: FDA-Public Use
  Company Number: JP-SUCAMPO AG-SPI201400586

PATIENT
  Age: 82 Year
  Sex: Male

DRUGS (4)
  1. MAGMITT [Concomitant]
     Active Substance: MAGNESIUM OXIDE
     Dosage: 2 GM / DAY
     Route: 048
     Dates: start: 20140821
  2. AMITIZA [Suspect]
     Active Substance: LUBIPROSTONE
     Dosage: 24 MCG, BID
     Route: 048
     Dates: start: 20140821
  3. MAGMITT [Concomitant]
     Active Substance: MAGNESIUM OXIDE
     Indication: CONSTIPATION
     Dosage: 660 MG / DAY
     Route: 048
     Dates: start: 20140612, end: 20140820
  4. PURSENNID [Concomitant]
     Active Substance: SENNOSIDES A AND B CALCIUM
     Indication: CONSTIPATION
     Dosage: 24 MG, UNK
     Route: 048
     Dates: start: 20140821

REACTIONS (2)
  - Feeling abnormal [Unknown]
  - Chest pain [Unknown]

NARRATIVE: CASE EVENT DATE: 20140822
